FAERS Safety Report 6011889-7 (Version None)
Quarter: 2008Q4

REPORT INFORMATION
  Report Type: 
  Country: None (occurrence: None)
  Receive Date: 20081218
  Receipt Date: 20080929
  Transmission Date: 20090506
  Serious: No
  Sender: FDA-Public Use
  Company Number: US-ASTRAZENECA-2008UW20693

PATIENT
  Age: 70 Year
  Sex: Male

DRUGS (11)
  1. CRESTOR [Suspect]
     Dosage: 10 MG
     Route: 048
  2. NIASPAN [Concomitant]
     Dosage: 1500 MG
  3. INDISIN [Concomitant]
     Dosage: 50 MG AS NEEDED
  4. ACCUPRIL [Concomitant]
     Dosage: 20 MG
  5. ASPIRIN [Concomitant]
     Dosage: 80 MG
  6. DARVOCET [Concomitant]
     Dosage: AS NEEDED
  7. MULTI-VITAMIN [Concomitant]
  8. VITAMIN E [Concomitant]
  9. ASCORBIC ACID [Concomitant]
  10. FISH OIL [Concomitant]
  11. NITROGLYCERIN [Concomitant]
     Dosage: AS NEEDED

REACTIONS (1)
  - BLOOD PRESSURE INCREASED [None]
